FAERS Safety Report 6999057-3 (Version None)
Quarter: 2010Q3

REPORT INFORMATION
  Report Type: 
  Country: None (occurrence: None)
  Receive Date: 20100920
  Receipt Date: 20100907
  Transmission Date: 20110219
  Serious: Yes (Disabling, Other)
  Sender: FDA-Public Use
  Company Number: US-ELI_LILLY_AND_COMPANY-US201009003288

PATIENT
  Age: 68 Year
  Sex: Female

DRUGS (6)
  1. FORTEO [Suspect]
     Indication: OSTEOPOROSIS
     Dosage: 20 UG, DAILY (1/D)
  2. GABAPENTIN [Concomitant]
  3. TUMS [Concomitant]
  4. CALCIUM [Concomitant]
  5. VIACTIV /00751501/ [Concomitant]
  6. HORMONES [Concomitant]

REACTIONS (4)
  - DYSSTASIA [None]
  - HERPES ZOSTER [None]
  - HYPOAESTHESIA [None]
  - MUSCULAR WEAKNESS [None]
